FAERS Safety Report 21023475 (Version 1)
Quarter: 2022Q2

REPORT INFORMATION
  Report Type: Spontaneous
  Country: CH (occurrence: CH)
  Receive Date: 20220629
  Receipt Date: 20220629
  Transmission Date: 20220721
  Serious: Yes (Life-Threatening, Hospitalization, Other)
  Sender: FDA-Public Use
  Company Number: None

PATIENT
  Age: 64 Year
  Sex: Male
  Weight: 74 kg

DRUGS (9)
  1. IMLYGIC [Suspect]
     Active Substance: TALIMOGENE LAHERPAREPVEC
     Indication: Squamous cell carcinoma of skin
     Dosage: 4 MILLILITER (10E6 UFP/ML)
     Route: 058
     Dates: start: 20220512, end: 20220512
  2. CERTICAN [Suspect]
     Active Substance: EVEROLIMUS
     Indication: Heart transplant
     Dosage: 0.5 MILLIGRAM, QOD
     Route: 048
     Dates: start: 20220412
  3. PREDNISONE [Suspect]
     Active Substance: PREDNISONE
     Indication: Heart transplant
     Dosage: 10 MILLIGRAM, QD
     Route: 048
     Dates: start: 20220412
  4. ASPIRIN [Concomitant]
     Active Substance: ASPIRIN
     Indication: Myocardial ischaemia
     Dosage: 100 MILLIGRAM, QD (LONGTERM TREATMENT)
     Route: 048
  5. FELODIPINE\METOPROLOL SUCCINATE [Concomitant]
     Active Substance: FELODIPINE\METOPROLOL SUCCINATE
     Indication: Hypertension
     Dosage: 1 DOSAGE FORM, QD (LONGTERM TREATMENT)
     Route: 048
  6. CREON [Concomitant]
     Active Substance: PANCRELIPASE AMYLASE\PANCRELIPASE LIPASE\PANCRELIPASE PROTEASE
     Indication: Gastric bypass
     Dosage: UNK, EVERY 3 DAYS (LONGTERM TREATMENT)
     Route: 048
  7. PANTOPRAZOLE [Concomitant]
     Active Substance: PANTOPRAZOLE
     Indication: Gastrooesophageal reflux disease
     Dosage: 40 MILLIGRAM, QD (LONGTERM TREATMENT)
     Route: 048
  8. PRAVASTATIN [Concomitant]
     Active Substance: PRAVASTATIN
     Indication: Dyslipidaemia
     Dosage: 20 MILLIGRAM (LONGTERM TREATMENT)
     Route: 048
  9. CALCIUM\CHOLECALCIFEROL [Concomitant]
     Active Substance: CALCIUM\CHOLECALCIFEROL
     Indication: Osteoporosis
     Dosage: CHOLECALCIFEROL 400 UI + CALCIUM 500 MG (1CPR 1X/J) LONGTERM TREATMENT
     Route: 048

REACTIONS (2)
  - Herpes simplex sepsis [Recovering/Resolving]
  - Herpes simplex meningoencephalitis [Recovering/Resolving]

NARRATIVE: CASE EVENT DATE: 20220525
